FAERS Safety Report 15186211 (Version 1)
Quarter: 2018Q3

REPORT INFORMATION
  Report Type: Report from Study
  Country: US (occurrence: US)
  Receive Date: 20180723
  Receipt Date: 20180723
  Transmission Date: 20181010
  Serious: No
  Sender: FDA-Public Use
  Company Number: US-EXELIXIS-CABO-18013136

PATIENT
  Sex: Female

DRUGS (2)
  1. CABOMETYX [Suspect]
     Active Substance: CABOZANTINIB S-MALATE
     Indication: PRODUCT USED FOR UNKNOWN INDICATION
     Dosage: UNK
  2. CABOMETYX [Suspect]
     Active Substance: CABOZANTINIB S-MALATE
     Dosage: 20 MG, UNK

REACTIONS (14)
  - Anxiety [Unknown]
  - Blood pressure increased [Unknown]
  - Nausea [Unknown]
  - Weight decreased [Unknown]
  - Insomnia [Unknown]
  - Depression [Unknown]
  - Decreased appetite [Unknown]
  - Vomiting [Unknown]
  - Liver function test abnormal [Unknown]
  - Fatigue [Unknown]
  - Vision blurred [Unknown]
  - Epistaxis [Unknown]
  - Headache [Unknown]
  - Muscle spasms [Unknown]
